FAERS Safety Report 9471532 (Version 2)
Quarter: 2013Q3

REPORT INFORMATION
  Report Type: Spontaneous
  Country: US (occurrence: US)
  Receive Date: 20130822
  Receipt Date: 20130822
  Transmission Date: 20140515
  Serious: Yes (Death, Other)
  Sender: FDA-Public Use
  Company Number: US-LUNDBECK-DKLU1078672

PATIENT
  Age: 1 Year
  Sex: Female
  Weight: 6 kg

DRUGS (14)
  1. SABRIL (FOR ORAL SOLUTION) [Suspect]
     Indication: INFANTILE SPASMS
     Route: 048
     Dates: start: 20110712
  2. SABRIL (FOR ORAL SOLUTION) [Suspect]
     Indication: EPILEPSY
     Route: 048
  3. SABRIL (FOR ORAL SOLUTION) [Suspect]
     Route: 048
  4. SABRIL (FOR ORAL SOLUTION) [Suspect]
  5. SABRIL (FOR ORAL SOLUTION) [Suspect]
  6. SABRIL (FOR ORAL SOLUTION) [Suspect]
  7. CLONAZEPAM [Suspect]
     Indication: INFANTILE SPASMS
     Dosage: 1/2 TABLET
  8. CLONAZEPAM [Suspect]
     Indication: EPILEPSY
     Dosage: 1/2 TABLET
  9. CLONAZEPAM [Suspect]
     Dosage: 1  1/2 TABLETS
  10. TOPAMAX [Suspect]
     Indication: INFANTILE SPASMS
  11. TOPAMAX [Suspect]
     Indication: EPILEPSY
  12. KEPPRA [Concomitant]
     Indication: PRODUCT USED FOR UNKNOWN INDICATION
  13. PREDNISONE [Concomitant]
     Indication: PRODUCT USED FOR UNKNOWN INDICATION
  14. ZANTAC [Concomitant]
     Indication: PRODUCT USED FOR UNKNOWN INDICATION

REACTIONS (4)
  - Death [Fatal]
  - Tonic convulsion [Unknown]
  - Convulsion [Unknown]
  - Drug ineffective [Unknown]
